FAERS Safety Report 26065265 (Version 1)
Quarter: 2025Q4

REPORT INFORMATION
  Report Type: Spontaneous
  Country: CN (occurrence: CN)
  Receive Date: 20251119
  Receipt Date: 20251119
  Transmission Date: 20260118
  Serious: Yes (Other)
  Sender: JOHNSON AND JOHNSON
  Company Number: CN-JNJFOC-20251153660

PATIENT
  Age: 73 Year
  Sex: Male
  Weight: 55 kg

DRUGS (2)
  1. DARATUMUMAB [Suspect]
     Active Substance: DARATUMUMAB
     Indication: Plasma cell myeloma
     Route: 041
     Dates: start: 20251105, end: 20251105
  2. SODIUM CHLORIDE [Concomitant]
     Active Substance: SODIUM CHLORIDE
     Indication: Vehicle solution use
     Route: 041
     Dates: start: 20251105, end: 20251105

REACTIONS (4)
  - Heart rate increased [Recovering/Resolving]
  - Blood pressure increased [Recovering/Resolving]
  - Temperature intolerance [Recovering/Resolving]
  - Chills [Recovering/Resolving]

NARRATIVE: CASE EVENT DATE: 20251105
